FAERS Safety Report 7903800-6 (Version None)
Quarter: 2011Q4

REPORT INFORMATION
  Report Type: 
  Country: None (occurrence: None)
  Receive Date: 20111109
  Receipt Date: 20111107
  Transmission Date: 20120403
  Serious: Yes (Life-Threatening)
  Sender: FDA-Public Use
  Company Number: JP-SANOFI-AVENTIS-2011SA073204

PATIENT
  Age: 69 Year
  Sex: Male

DRUGS (1)
  1. OXALIPLATIN [Suspect]
     Route: 065

REACTIONS (1)
  - VENTRICULAR FIBRILLATION [None]
